FAERS Safety Report 19658244 (Version 1)
Quarter: 2021Q3

REPORT INFORMATION
  Report Type: Spontaneous
  Country: US (occurrence: US)
  Receive Date: 20210804
  Receipt Date: 20210804
  Transmission Date: 20211014
  Serious: No
  Sender: FDA-Public Use
  Company Number: US-JNJFOC-20210764655

PATIENT
  Sex: Female

DRUGS (1)
  1. RISPERDAL [Suspect]
     Active Substance: RISPERIDONE
     Indication: PRODUCT USED FOR UNKNOWN INDICATION
     Route: 065

REACTIONS (9)
  - Weight increased [Unknown]
  - Hyperhidrosis [Unknown]
  - Heat stroke [Unknown]
  - Hypokinesia [Unknown]
  - Dehydration [Unknown]
  - Condition aggravated [Unknown]
  - Drug ineffective [Unknown]
  - Asthenia [Unknown]
  - Myalgia [Unknown]
